FAERS Safety Report 5768323-1 (Version None)
Quarter: 2008Q2

REPORT INFORMATION
  Report Type: 
  Country: None (occurrence: None)
  Receive Date: 20080612
  Receipt Date: 20080304
  Transmission Date: 20081010
  Serious: No
  Sender: FDA-Public Use
  Company Number: US-ABBOTT-08P-163-0435923-00

PATIENT
  Age: 40 Year
  Sex: Male

DRUGS (3)
  1. HUMIRA [Suspect]
     Indication: PSORIATIC ARTHROPATHY
     Route: 058
     Dates: start: 20071213
  2. HUMIRA [Suspect]
     Dates: start: 20071213
  3. PREDNISONE TAB [Suspect]
     Indication: PSORIATIC ARTHROPATHY
     Route: 048

REACTIONS (4)
  - ASPIRATION JOINT ABNORMAL [None]
  - ECCHYMOSIS [None]
  - HAEMARTHROSIS [None]
  - HAEMORRHAGE [None]
